FAERS Safety Report 7152998-9 (Version None)
Quarter: 2010Q4

REPORT INFORMATION
  Report Type: 
  Country: None (occurrence: None)
  Receive Date: 20101213
  Receipt Date: 20101130
  Transmission Date: 20110411
  Serious: Yes (Hospitalization, Other)
  Sender: FDA-Public Use
  Company Number: US-ELI_LILLY_AND_COMPANY-US201011000560

PATIENT
  Sex: Female

DRUGS (6)
  1. FORTEO [Suspect]
     Indication: OSTEOPOROSIS
     Dosage: 20 UG, DAILY (1/D)
     Dates: start: 20100630, end: 20100808
  2. DETROL [Concomitant]
     Dosage: UNK, DAILY (1/D)
  3. PERCOCET [Concomitant]
     Dosage: UNK, AS NEEDED
  4. QUINAPRIL [Concomitant]
     Dosage: UNK, DAILY (1/D)
  5. KLOR-CON [Concomitant]
  6. LESCOL /SCH/ [Concomitant]

REACTIONS (2)
  - ROAD TRAFFIC ACCIDENT [None]
  - SPINAL FRACTURE [None]
